FAERS Safety Report 5082639-6 (Version None)
Quarter: 2006Q3

REPORT INFORMATION
  Report Type: 
  Country: None (occurrence: None)
  Receive Date: 20060814
  Receipt Date: 20060801
  Transmission Date: 20061208
  Serious: Yes (Disabling, Other)
  Sender: FDA-Public Use
  Company Number: 14378

PATIENT
  Age: 32 Year
  Sex: Female

DRUGS (3)
  1. PAMIDRONATE DISODIUM [Suspect]
     Indication: COMPLEX REGIONAL PAIN SYNDROME
     Dosage: 90 MG TOTAL IV
     Route: 042
     Dates: start: 20060410, end: 20060410
  2. OMEPRAZOLE [Concomitant]
  3. PAROXETINE HCL [Concomitant]

REACTIONS (7)
  - ABORTION SPONTANEOUS [None]
  - BACK PAIN [None]
  - BLOOD ALKALINE PHOSPHATASE INCREASED [None]
  - BONE PAIN [None]
  - DRUG EXPOSURE DURING PREGNANCY [None]
  - DYSPNOEA [None]
  - GINGIVAL PAIN [None]
